FAERS Safety Report 16923893 (Version 2)
Quarter: 2019Q4

REPORT INFORMATION
  Report Type: Report from Study
  Country: US (occurrence: US)
  Receive Date: 20191016
  Receipt Date: 20191021
  Transmission Date: 20200122
  Serious: Yes (Disabling, Congenital Anomaly, Other)
  Sender: FDA-Public Use
  Company Number: US-ACCORD-157105

PATIENT
  Sex: Male

DRUGS (1)
  1. METHOTREXATE. [Suspect]
     Active Substance: METHOTREXATE
     Indication: ABORTION INDUCED
     Route: 064

REACTIONS (10)
  - Hypospadias [Unknown]
  - Chordee [Unknown]
  - Foetal methotrexate syndrome [Not Recovered/Not Resolved]
  - Microcephaly [Not Recovered/Not Resolved]
  - Skull malformation [Unknown]
  - Dysmorphism [Unknown]
  - Anonychia [Unknown]
  - Clinodactyly [Recovering/Resolving]
  - Congenital limb hyperextension [Unknown]
  - Foetal exposure during pregnancy [Unknown]
